FAERS Safety Report 5367215-X (Version None)
Quarter: 2007Q2

REPORT INFORMATION
  Report Type: 
  Country: None (occurrence: None)
  Receive Date: 20070622
  Receipt Date: 20070612
  Transmission Date: 20071010
  Serious: Yes (Hospitalization, Other)
  Sender: FDA-Public Use
  Company Number: US-ROCHE-496822

PATIENT
  Age: 46 Year
  Sex: Male

DRUGS (18)
  1. FUZEON [Suspect]
     Indication: DRUG USE FOR UNKNOWN INDICATION
     Dosage: REPORTED AS ^90 EVERY 12 HOURS.^
     Route: 065
  2. REYATAZ [Concomitant]
  3. UNSPECIFIED DRUG [Concomitant]
     Dosage: DRUG NAME REPORTED AS: 'PERSISTA'
  4. NORVIR [Concomitant]
  5. AZITHROMYCIN [Concomitant]
  6. ETHAMBUTOL HYDROCHLORIDE [Concomitant]
  7. FLUCONAZOLE [Concomitant]
  8. BACTRIM [Concomitant]
  9. CLOTRIMAZOLE [Concomitant]
  10. ACETAMINOPHEN [Concomitant]
  11. MORPHINE [Concomitant]
  12. ENOXAPARIN SODIUM [Concomitant]
  13. HYDROXYZINE HYDROCHLORIDE [Concomitant]
  14. IBUPROFEN [Concomitant]
  15. TRAMADOL HCL [Concomitant]
  16. PREDNISONE TAB [Concomitant]
  17. LOMOTIL [Concomitant]
  18. ACYCLOVIR [Concomitant]

REACTIONS (3)
  - BLOOD CREATINE PHOSPHOKINASE INCREASED [None]
  - MYALGIA [None]
  - MYCOBACTERIUM AVIUM COMPLEX INFECTION [None]
